FAERS Safety Report 15458697 (Version 1)
Quarter: 2018Q4

REPORT INFORMATION
  Report Type: Spontaneous
  Country: US (occurrence: US)
  Receive Date: 20181001
  Receipt Date: 20181001
  Transmission Date: 20190204
  Serious: Yes (Disabling, Other)
  Sender: FDA-Public Use
  Company Number: None

PATIENT
  Age: 60 Year
  Sex: Female
  Weight: 80.1 kg

DRUGS (13)
  1. MICARDIS [Concomitant]
     Active Substance: TELMISARTAN
  2. MELOXICAM. [Concomitant]
     Active Substance: MELOXICAM
  3. NORVASC [Concomitant]
     Active Substance: AMLODIPINE BESYLATE
  4. ZEPRAMINE [Concomitant]
  5. FLONASE [Concomitant]
     Active Substance: FLUTICASONE PROPIONATE
  6. DIABETES PILLS [Concomitant]
  7. CARVEDIOLOL [Concomitant]
  8. LATUDA [Concomitant]
     Active Substance: LURASIDONE HYDROCHLORIDE
  9. BLOOD PRESSURE PILLS [Concomitant]
     Active Substance: UNSPECIFIED INGREDIENT
  10. RISPERDAL [Concomitant]
     Active Substance: RISPERIDONE
  11. METFORMIN [Concomitant]
     Active Substance: METFORMIN HYDROCHLORIDE
  12. CLONAZEPAM. [Concomitant]
     Active Substance: CLONAZEPAM
  13. DEXAMETHASONE. [Suspect]
     Active Substance: DEXAMETHASONE
     Indication: ARTHRITIS

REACTIONS (6)
  - Somnolence [None]
  - Feeling abnormal [None]
  - Memory impairment [None]
  - Loss of personal independence in daily activities [None]
  - Asthenia [None]
  - Blood glucose increased [None]

NARRATIVE: CASE EVENT DATE: 20180921
